FAERS Safety Report 21050609 (Version 2)
Quarter: 2022Q3

REPORT INFORMATION
  Report Type: Spontaneous
  Country: US (occurrence: US)
  Receive Date: 20220707
  Receipt Date: 20220708
  Transmission Date: 20221027
  Serious: No
  Sender: FDA-Public Use
  Company Number: US-NOVARTISTESTPH-NVSC2022US153897

PATIENT
  Sex: Female

DRUGS (2)
  1. TAFINLAR [Suspect]
     Active Substance: DABRAFENIB MESYLATE
     Indication: Benign lymph node neoplasm
     Dosage: 75 MG
     Route: 048
     Dates: start: 20220613
  2. MEKINIST [Suspect]
     Active Substance: TRAMETINIB DIMETHYL SULFOXIDE
     Indication: Benign lymph node neoplasm
     Dosage: 2 MG (NIGHTLY)
     Route: 048
     Dates: start: 20220613

REACTIONS (2)
  - Pain [Unknown]
  - Product use in unapproved indication [Unknown]
